FAERS Safety Report 5875071-6 (Version None)
Quarter: 2008Q3

REPORT INFORMATION
  Report Type: 
  Country: None (occurrence: None)
  Receive Date: 20080909
  Receipt Date: 20080903
  Transmission Date: 20090109
  Serious: Yes (Other)
  Sender: FDA-Public Use
  Company Number: FR-BAYER-200825714GPV

PATIENT
  Sex: Male

DRUGS (2)
  1. MABCAMPATH [Suspect]
     Indication: CHRONIC LYMPHOCYTIC LEUKAEMIA
  2. FLUDARA [Suspect]
     Indication: CHRONIC LYMPHOCYTIC LEUKAEMIA

REACTIONS (1)
  - SKIN CANCER [None]
